FAERS Safety Report 20371551 (Version 1)
Quarter: 2022Q1

REPORT INFORMATION
  Report Type: Spontaneous
  Country: DE (occurrence: None)
  Receive Date: 20220123
  Receipt Date: 20220123
  Transmission Date: 20220423
  Serious: Yes (Hospitalization, Disabling)
  Sender: FDA-Public Use
  Company Number: None

PATIENT
  Age: 34 Year
  Sex: Male
  Weight: 105 kg

DRUGS (1)
  1. FOLIGAIN [Suspect]
     Active Substance: MINOXIDIL
     Indication: Alopecia
     Dates: end: 20210731

REACTIONS (34)
  - Erectile dysfunction [None]
  - Tremor [None]
  - Fatigue [None]
  - Tinnitus [None]
  - Sleep disorder [None]
  - Seizure [None]
  - Palpitations [None]
  - Blood pressure increased [None]
  - Paraesthesia [None]
  - Hypoaesthesia [None]
  - Sensory disturbance [None]
  - Muscular weakness [None]
  - Loss of libido [None]
  - Semen volume decreased [None]
  - Genital hypoaesthesia [None]
  - Gastrointestinal disorder [None]
  - Micturition disorder [None]
  - Muscle spasms [None]
  - Muscle twitching [None]
  - Dry skin [None]
  - Vision blurred [None]
  - Movement disorder [None]
  - Blepharospasm [None]
  - Visual snow syndrome [None]
  - Speech disorder [None]
  - Electric shock sensation [None]
  - Amnesia [None]
  - Cognitive disorder [None]
  - Depressed mood [None]
  - Paralysis [None]
  - Middle insomnia [None]
  - Feeling of body temperature change [None]
  - Panic reaction [None]
  - Quality of life decreased [None]

NARRATIVE: CASE EVENT DATE: 20210108
